FAERS Safety Report 9881771 (Version 9)
Quarter: 2016Q1

REPORT INFORMATION
  Report Type: Report from Study
  Country: US (occurrence: US)
  Receive Date: 20140207
  Receipt Date: 20160129
  Transmission Date: 20160526
  Serious: Yes (Hospitalization, Other)
  Sender: FDA-Public Use
  Company Number: US-SA-2013SA100116

PATIENT
  Age: 66 Year
  Sex: Female

DRUGS (5)
  1. AUBAGIO [Suspect]
     Active Substance: TERIFLUNOMIDE
     Indication: MULTIPLE SCLEROSIS
     Route: 048
     Dates: start: 20130801
  2. CYCLOBENZAPRINE [Concomitant]
     Active Substance: CYCLOBENZAPRINE
  3. MECLIZINE [Concomitant]
     Active Substance: MECLIZINE HYDROCHLORIDE
     Indication: DIZZINESS
  4. GABAPENTIN. [Concomitant]
     Active Substance: GABAPENTIN
  5. BACLOFEN. [Concomitant]
     Active Substance: BACLOFEN

REACTIONS (14)
  - Speech disorder [Not Recovered/Not Resolved]
  - Staphylococcal infection [Unknown]
  - Vertigo [Unknown]
  - Nasopharyngitis [Unknown]
  - Gait disturbance [Unknown]
  - Malaise [Unknown]
  - Clostridial infection [Unknown]
  - Product quality issue [Unknown]
  - Sensory disturbance [Unknown]
  - Arthralgia [Unknown]
  - Hip arthroplasty [Unknown]
  - Wheelchair user [Unknown]
  - Arthralgia [Not Recovered/Not Resolved]
  - Pruritus [Not Recovered/Not Resolved]
